FAERS Safety Report 12726550 (Version 2)
Quarter: 2016Q3

REPORT INFORMATION
  Report Type: Spontaneous
  Country: US (occurrence: US)
  Receive Date: 20160908
  Receipt Date: 20160923
  Transmission Date: 20161109
  Serious: No
  Sender: FDA-Public Use
  Company Number: US-GLAXOSMITHKLINE-US2016GSK128791

PATIENT
  Age: 16 Year
  Sex: Male

DRUGS (4)
  1. BREO ELLIPTA [Suspect]
     Active Substance: FLUTICASONE FUROATE\VILANTEROL TRIFENATATE
     Dosage: 200/25MCG UNK, U
     Dates: start: 201608
  2. BREO ELLIPTA [Suspect]
     Active Substance: FLUTICASONE FUROATE\VILANTEROL TRIFENATATE
     Indication: ASTHMA
     Dosage: 200/25 MCG, QD
     Dates: start: 201601
  3. BREO ELLIPTA [Suspect]
     Active Substance: FLUTICASONE FUROATE\VILANTEROL TRIFENATATE
     Dosage: 100/25 MCG UNK, U
  4. BREO ELLIPTA [Suspect]
     Active Substance: FLUTICASONE FUROATE\VILANTEROL TRIFENATATE
     Dosage: 100/25MCG, QD

REACTIONS (4)
  - Drug ineffective [Unknown]
  - Nasopharyngitis [Recovering/Resolving]
  - Drug administered to patient of inappropriate age [Unknown]
  - Tibia fracture [Recovering/Resolving]

NARRATIVE: CASE EVENT DATE: 201607
